FAERS Safety Report 7574286-9 (Version None)
Quarter: 2011Q2

REPORT INFORMATION
  Report Type: 
  Country: None (occurrence: None)
  Receive Date: 20110627
  Receipt Date: 20110614
  Transmission Date: 20111010
  Serious: Yes (Other)
  Sender: FDA-Public Use
  Company Number: CA-JNJFOC-20110607774

PATIENT
  Sex: Male

DRUGS (4)
  1. INDOCIN [Concomitant]
     Indication: PRODUCT USED FOR UNKNOWN INDICATION
  2. REMICADE [Suspect]
     Indication: ARTHRITIS REACTIVE
     Route: 042
     Dates: start: 20110421
  3. REMICADE [Suspect]
     Route: 042
     Dates: start: 20080601
  4. METHOTREXATE [Concomitant]
     Indication: PRODUCT USED FOR UNKNOWN INDICATION

REACTIONS (2)
  - SURGERY [None]
  - LOCALISED INFECTION [None]
